FAERS Safety Report 10277221 (Version 2)
Quarter: 2014Q3

REPORT INFORMATION
  Report Type: Spontaneous
  Country: FR (occurrence: FR)
  Receive Date: 20140703
  Receipt Date: 20140703
  Transmission Date: 20150326
  Serious: Yes (Disabling, Other)
  Sender: FDA-Public Use
  Company Number: FR-ABBVIE-14P-056-1248399-00

PATIENT
  Sex: Male
  Weight: 64 kg

DRUGS (3)
  1. COZAAR [Concomitant]
     Active Substance: LOSARTAN POTASSIUM
     Indication: HYPERTENSION
  2. HUMIRA [Suspect]
     Active Substance: ADALIMUMAB
     Indication: CROHN^S DISEASE
     Dates: start: 201110, end: 201302
  3. HUMIRA [Suspect]
     Active Substance: ADALIMUMAB
     Dates: start: 201311

REACTIONS (3)
  - Diplopia [Not Recovered/Not Resolved]
  - Cataract [Unknown]
  - Cerebrovascular accident [Unknown]

NARRATIVE: CASE EVENT DATE: 2012
